FAERS Safety Report 18096681 (Version 2)
Quarter: 2020Q3

REPORT INFORMATION
  Report Type: Spontaneous
  Country: FR (occurrence: FR)
  Receive Date: 20200731
  Receipt Date: 20200918
  Transmission Date: 20201103
  Serious: Yes (Hospitalization)
  Sender: FDA-Public Use
  Company Number: FR-TEVA-2020-FR-1806789

PATIENT
  Age: 77 Year
  Sex: Female

DRUGS (11)
  1. METFORMIN HYDROCHLORIDE. [Suspect]
     Active Substance: METFORMIN HYDROCHLORIDE
     Dosage: UNK, TID, THERAPY START DATE AND END DATE: ASKU, METFORMIN 500 MG, UNIT DOSE: 1500 MG
     Route: 065
  2. LANSOPRAZOLE. [Suspect]
     Active Substance: LANSOPRAZOLE
     Dosage: 15 MILLIGRAM DAILY;  IN THE MORNING, THERAPY START DATE AND END DATE: ASKU
     Route: 065
  3. DIAZEPAM. [Suspect]
     Active Substance: DIAZEPAM
     Dosage: UNK, THERAPY START DATE AND END DATE: ASKU
     Route: 065
  4. LORMETAZEPAM [Suspect]
     Active Substance: LORMETAZEPAM
     Dosage: UNK, THERAPY START DATE AND END DATE: ASKU
     Route: 065
  5. TERALITHE [Suspect]
     Active Substance: LITHIUM CARBONATE
     Dosage: 1 DOSAGE FORMS DAILY; QD, THERAPY START DATE AND END DATE: ASKU
     Route: 065
  6. FUNGIZONE [Suspect]
     Active Substance: AMPHOTERICIN B
     Dosage: UNK, THERAPY START DATE AND END DATE: ASKU
     Route: 065
  7. TERALITHE [Suspect]
     Active Substance: LITHIUM CARBONATE
     Indication: BIPOLAR DISORDER
     Dosage: .5 DOSAGE FORMS DAILY; QD,  THERAPY START DATE AND END DATE: ASKU
     Route: 065
  8. PAROXETINE HYDROCHLORIDE. [Suspect]
     Active Substance: PAROXETINE HYDROCHLORIDE
     Dosage: 20 MILLIGRAM, THERAPY START DATE AND END DATE: ASKU
     Route: 065
  9. MACROGOL 3350/POTASSIUM CHLORIDE/SODIUM BICARBONATE/SODIUM CHLORIDE [Suspect]
     Active Substance: POLYETHYLENE GLYCOL 3350\POTASSIUM CHLORIDE\SODIUM BICARBONATE\SODIUM CHLORIDE
     Indication: PRODUCT USED FOR UNKNOWN INDICATION
     Dosage: THERAPY START DATE :ASKU, THERAPY END DATE : ASKU
  10. KARDEGIC [Suspect]
     Active Substance: ASPIRIN DL-LYSINE
     Dosage: 75 MILLIGRAM DAILY; AT NOON, THERAPY START DATE AND END DATE: ASKU
     Route: 065
  11. INSULIN LISPRO [Suspect]
     Active Substance: INSULIN LISPRO
     Dosage: UNK, THERAPY START DATE AND END DATE: ASKU
     Route: 065

REACTIONS (2)
  - Hypercalcaemia [Not Recovered/Not Resolved]
  - Blood uric acid increased [Recovered/Resolved]
